FAERS Safety Report 8958943 (Version 2)
Quarter: 2013Q1

REPORT INFORMATION
  Report Type: Spontaneous
  Country: DE (occurrence: DE)
  Receive Date: 20121212
  Receipt Date: 20130225
  Transmission Date: 20140127
  Serious: Yes (Death)
  Sender: FDA-Public Use
  Company Number: PHHY2012DE114331

PATIENT
  Sex: 0

DRUGS (1)
  1. EXTAVIA [Suspect]

REACTIONS (1)
  - Death [Fatal]
